FAERS Safety Report 6869594-0 (Version None)
Quarter: 2010Q3

REPORT INFORMATION
  Report Type: 
  Country: None (occurrence: None)
  Receive Date: 20100722
  Receipt Date: 20080816
  Transmission Date: 20110219
  Serious: No
  Sender: FDA-Public Use
  Company Number: US-PFIZER INC-2008069283

PATIENT
  Sex: Male
  Weight: 79.38 kg

DRUGS (1)
  1. CHANTIX [Suspect]
     Indication: SMOKING CESSATION THERAPY
     Dates: start: 20080101, end: 20080101

REACTIONS (3)
  - EYE DISORDER [None]
  - EYE PAIN [None]
  - OCULAR HYPERAEMIA [None]
